FAERS Safety Report 11057084 (Version 2)
Quarter: 2015Q2

REPORT INFORMATION
  Report Type: Spontaneous
  Country: US (occurrence: US)
  Receive Date: 20150422
  Receipt Date: 20150515
  Transmission Date: 20150821
  Serious: Yes (Other)
  Sender: FDA-Public Use
  Company Number: US-PFIZER INC-2015132595

PATIENT
  Age: 45 Year
  Sex: Female
  Weight: 68 kg

DRUGS (1)
  1. PRISTIQ EXTENDED RELEASE [Suspect]
     Active Substance: DESVENLAFAXINE SUCCINATE
     Indication: DEPRESSION
     Dosage: 40 MG, UNK (1 N AM)
     Dates: start: 2005

REACTIONS (3)
  - Asthenia [Unknown]
  - Pain [Unknown]
  - Animal bite [Unknown]

NARRATIVE: CASE EVENT DATE: 2011
